FAERS Safety Report 7103296-0 (Version None)
Quarter: 2010Q4

REPORT INFORMATION
  Report Type: 
  Country: None (occurrence: None)
  Receive Date: 20101115
  Receipt Date: 20101109
  Transmission Date: 20110411
  Serious: Yes (Hospitalization, Other)
  Sender: FDA-Public Use
  Company Number: NL-BRISTOL-MYERS SQUIBB COMPANY-15383318

PATIENT
  Age: 68 Year
  Sex: Female

DRUGS (3)
  1. CETUXIMAB [Suspect]
     Indication: NON-SMALL CELL LUNG CANCER
     Dosage: CUMULATIVE DOSE:3149MG RECENT INF:25OCT2010
     Route: 042
     Dates: start: 20100920
  2. CISPLATIN [Suspect]
     Indication: NON-SMALL CELL LUNG CANCER
     Dosage: CUMULATIVE DOSE:310MG DAILY ON 5 DAYS/WEEK; RECENT INF:28OCT2010
     Route: 042
     Dates: start: 20100927
  3. MOVICOLON [Concomitant]
     Dates: start: 20100920

REACTIONS (1)
  - CONSTIPATION [None]
